FAERS Safety Report 14562257 (Version 1)
Quarter: 2018Q1

REPORT INFORMATION
  Report Type: Spontaneous
  Country: US (occurrence: US)
  Receive Date: 20180221
  Receipt Date: 20180221
  Transmission Date: 20180509
  Serious: Yes (Other)
  Sender: FDA-Public Use
  Company Number: None

PATIENT
  Age: 68 Year
  Sex: Female

DRUGS (2)
  1. CAPECITABINE 150MG [Suspect]
     Active Substance: CAPECITABINE
     Indication: COLON CANCER
     Dosage: X 14 DAYS
     Route: 048
     Dates: start: 20180201
  2. CAPECITABINE 500 MG [Suspect]
     Active Substance: CAPECITABINE
     Indication: COLON CANCER
     Dosage: X 14 DAYS
     Route: 048
     Dates: start: 20180201

REACTIONS (4)
  - Skin exfoliation [None]
  - Hyperaesthesia [None]
  - Erythema [None]
  - Blister [None]

NARRATIVE: CASE EVENT DATE: 20180205
